FAERS Safety Report 10431364 (Version 2)
Quarter: 2014Q3

REPORT INFORMATION
  Report Type: Spontaneous
  Country: US (occurrence: None)
  Receive Date: 20140903
  Receipt Date: 20140922
  Transmission Date: 20150326
  Serious: Yes (Death, Hospitalization)
  Sender: FDA-Public Use
  Company Number: 2014US003621

PATIENT
  Age: 56 Year
  Sex: Male
  Weight: 81 kg

DRUGS (8)
  1. OXYCODONE HCL (OXYCODONE HYDROCHLORIDE) [Concomitant]
  2. LISINOPRIL (LISINOPRIL DIHYDRATE) [Concomitant]
  3. HYDROCHLOROTHIAZIDE. [Concomitant]
     Active Substance: HYDROCHLOROTHIAZIDE
  4. OXYCONTIN [Concomitant]
     Active Substance: OXYCODONE HYDROCHLORIDE
  5. METOPROLOL (METOPROLOL TARTRATE) [Concomitant]
     Active Substance: METOPROLOL TARTRATE
  6. DOCUSATE SODIUM. [Concomitant]
     Active Substance: DOCUSATE SODIUM
  7. AMLODIPINE (AMLODIPINE MESILATE) [Concomitant]
  8. PONATINIB [Suspect]
     Active Substance: PONATINIB
     Indication: GASTROINTESTINAL STROMAL TUMOUR
     Route: 048
     Dates: start: 20140731, end: 20140814

REACTIONS (13)
  - Arthralgia [None]
  - Hepatic failure [None]
  - Hepatic encephalopathy [None]
  - Blood pressure increased [None]
  - Ascites [None]
  - Pain [None]
  - Coagulopathy [None]
  - Myalgia [None]
  - Deep vein thrombosis [None]
  - Mental status changes [None]
  - Renal failure [None]
  - Blood glucose increased [None]
  - Pulmonary embolism [None]

NARRATIVE: CASE EVENT DATE: 20140820
